FAERS Safety Report 19874011 (Version 3)
Quarter: 2021Q4

REPORT INFORMATION
  Report Type: Spontaneous
  Country: US (occurrence: US)
  Receive Date: 20210923
  Receipt Date: 20211103
  Transmission Date: 20220303
  Serious: Yes (Hospitalization)
  Sender: FDA-Public Use
  Company Number: US-CELGENE-USA-20210904971

PATIENT
  Sex: Female
  Weight: 83.082 kg

DRUGS (1)
  1. REVLIMID [Suspect]
     Active Substance: LENALIDOMIDE
     Indication: Plasma cell myeloma
     Dosage: 25 MILLIGRAM
     Route: 048
     Dates: start: 202104

REACTIONS (3)
  - Renal disorder [Not Recovered/Not Resolved]
  - Blood potassium abnormal [Unknown]
  - Depression [Unknown]
